FAERS Safety Report 7799285-3 (Version None)
Quarter: 2011Q4

REPORT INFORMATION
  Report Type: 
  Country: None (occurrence: None)
  Receive Date: 20111006
  Receipt Date: 20110928
  Transmission Date: 20120403
  Serious: Yes (Other)
  Sender: FDA-Public Use
  Company Number: US-SANOFI-AVENTIS-2011SA064502

PATIENT
  Sex: Female

DRUGS (4)
  1. ALLEGRA [Suspect]
     Indication: SINUS DISORDER
     Route: 048
     Dates: start: 19960101
  2. ALLEGRA [Suspect]
     Route: 048
     Dates: start: 19960101
  3. ALLEGRA [Suspect]
     Route: 048
     Dates: start: 20110101
  4. ALLEGRA [Suspect]
     Route: 048
     Dates: start: 20110101

REACTIONS (2)
  - SYSTEMIC LUPUS ERYTHEMATOSUS [None]
  - URTICARIA [None]
